FAERS Safety Report 6628395-9 (Version None)
Quarter: 2010Q1

REPORT INFORMATION
  Report Type: 
  Country: None (occurrence: None)
  Receive Date: 20100311
  Receipt Date: 20100305
  Transmission Date: 20100710
  Serious: Yes (Death)
  Sender: FDA-Public Use
  Company Number: TN-SANOFI-AVENTIS-2010SA012502

PATIENT
  Age: 60 Year
  Sex: Male

DRUGS (5)
  1. CLOPIDOGREL BISULFATE [Suspect]
     Route: 048
     Dates: start: 20091018, end: 20091101
  2. KARDEGIC [Suspect]
     Route: 048
     Dates: start: 20091018, end: 20091101
  3. ATORVASTATIN CALCIUM [Concomitant]
     Indication: DRUG USE FOR UNKNOWN INDICATION
     Route: 048
     Dates: end: 20091101
  4. TRIATEC [Concomitant]
     Indication: DRUG USE FOR UNKNOWN INDICATION
     Route: 048
     Dates: end: 20091101
  5. RISORDAN [Concomitant]
     Indication: DRUG USE FOR UNKNOWN INDICATION
     Route: 048
     Dates: end: 20091101

REACTIONS (2)
  - HAEMORRHAGIC STROKE [None]
  - RUPTURED CEREBRAL ANEURYSM [None]
